FAERS Safety Report 15795525 (Version 1)
Quarter: 2019Q1

REPORT INFORMATION
  Report Type: Spontaneous
  Country: US (occurrence: US)
  Receive Date: 20190107
  Receipt Date: 20190107
  Transmission Date: 20190417
  Serious: Yes (Hospitalization)
  Sender: FDA-Public Use
  Company Number: None

PATIENT
  Sex: Male

DRUGS (19)
  1. TAMSULOSIN [Concomitant]
     Active Substance: TAMSULOSIN
  2. ADVAIR HFA [Concomitant]
     Active Substance: FLUTICASONE PROPIONATE\SALMETEROL XINAFOATE
  3. AMLODIPINE [Concomitant]
     Active Substance: AMLODIPINE BESYLATE
  4. GABAPENTIN. [Concomitant]
     Active Substance: GABAPENTIN
  5. IRBESARTAN. [Concomitant]
     Active Substance: IRBESARTAN
  6. FASENRA [Concomitant]
     Active Substance: BENRALIZUMAB
  7. DOXYCYCL HYC [Concomitant]
  8. METHYLPRED [Concomitant]
     Active Substance: METHYLPREDNISOLONE
  9. POTASSIUM CHLORIDE. [Concomitant]
     Active Substance: POTASSIUM CHLORIDE
  10. LEVOFLOXACIN. [Concomitant]
     Active Substance: LEVOFLOXACIN
  11. XOLAIR [Suspect]
     Active Substance: OMALIZUMAB
     Indication: ASTHMA
     Dosage: ?          OTHER FREQUENCY:Q2W;?
     Route: 058
     Dates: start: 20170228
  12. TORSEMIDE. [Concomitant]
     Active Substance: TORSEMIDE
  13. APAP/CODEINE [Concomitant]
     Active Substance: ACETAMINOPHEN\CODEINE PHOSPHATE
  14. BUMETANIDE. [Concomitant]
     Active Substance: BUMETANIDE
  15. MONTELUKAST [Concomitant]
     Active Substance: MONTELUKAST SODIUM
  16. PROAIR HFA [Concomitant]
     Active Substance: ALBUTEROL SULFATE
  17. SPIRIVA [Concomitant]
     Active Substance: TIOTROPIUM BROMIDE MONOHYDRATE
  18. TRAMADOL HCL [Concomitant]
     Active Substance: TRAMADOL HYDROCHLORIDE
  19. HYDRALAZINE [Concomitant]
     Active Substance: HYDRALAZINE HYDROCHLORIDE

REACTIONS (1)
  - Hospitalisation [None]
